FAERS Safety Report 20872959 (Version 1)
Quarter: 2022Q2

REPORT INFORMATION
  Report Type: Report from Study
  Country: CA (occurrence: CA)
  Receive Date: 20220525
  Receipt Date: 20220525
  Transmission Date: 20220720
  Serious: Yes (Life-Threatening, Hospitalization, Other)
  Sender: FDA-Public Use
  Company Number: CA-BoehringerIngelheim-2020-BI-033472

PATIENT
  Age: 76 Year
  Sex: Female
  Weight: 67.5 kg

DRUGS (2)
  1. OFEV [Suspect]
     Active Substance: NINTEDANIB
     Indication: Idiopathic pulmonary fibrosis
     Route: 048
     Dates: start: 20200530, end: 20200625
  2. PREDNISONE 7.5 MG [Concomitant]
     Indication: Pulmonary fibrosis
     Dates: start: 2019

REACTIONS (5)
  - Hepatic failure [Recovered/Resolved]
  - Shock [Recovered/Resolved]
  - Drug intolerance [Recovered/Resolved]
  - Tremor [Recovered/Resolved]
  - Movement disorder [Recovered/Resolved]

NARRATIVE: CASE EVENT DATE: 20200601
